FAERS Safety Report 8063744-9 (Version None)
Quarter: 2012Q1

REPORT INFORMATION
  Report Type: 
  Country: None (occurrence: None)
  Receive Date: 20120123
  Receipt Date: 20120109
  Transmission Date: 20120608
  Serious: Yes (Other)
  Sender: FDA-Public Use
  Company Number: PHHY2012ES004979

PATIENT
  Age: 45 Year
  Sex: Male

DRUGS (8)
  1. SELEGILINE [Suspect]
     Dosage: 5 MG, DAILY
  2. PRAMIPEXOLE DIHYCHLLORIDE [Suspect]
     Dosage: 2.1 MG, DAILY
  3. AMANTADINE HCL [Suspect]
     Dosage: 100 MG, DAILY
  4. PRAMIPEXOLE DIHYCHLLORIDE [Suspect]
     Dosage: 2.8 MG, DAILY
  5. ENTACAPONE-LEVODOPA-CARBIDOPA [Suspect]
     Dosage: 400/100 MG DAILY
  6. PROPRANOLOL [Suspect]
     Dosage: 160 MG, DAILY
  7. ENTACAPONE-LEVODOPA-CARBIDOPA [Suspect]
     Dosage: 600/150/800 MG DAILY
  8. BIPERIDEN HYDROCHLORIDE TAB [Suspect]
     Dosage: 4 MG, DAILY

REACTIONS (6)
  - APATHY [None]
  - HYPERSEXUALITY [None]
  - DOPAMINE DYSREGULATION SYNDROME [None]
  - ON AND OFF PHENOMENON [None]
  - HYPOMANIA [None]
  - ANXIETY [None]
